FAERS Safety Report 6347571-6 (Version None)
Quarter: 2009Q3

REPORT INFORMATION
  Report Type: 
  Country: None (occurrence: None)
  Receive Date: 20090909
  Receipt Date: 20090909
  Transmission Date: 20100115
  Serious: Yes (Death)
  Sender: FDA-Public Use
  Company Number: None

PATIENT
  Sex: Male
  Weight: 102 kg

DRUGS (5)
  1. CERTOLIZUMAB PEGOL [Suspect]
     Dosage: SC
     Route: 058
     Dates: start: 20060711, end: 20071127
  2. METHOTREXATE [Concomitant]
  3. NIMESULIDE [Concomitant]
  4. WARFARIN SODIUM [Concomitant]
  5. ENALAPRIL MALEATE [Concomitant]

REACTIONS (19)
  - ASCITES [None]
  - CARDIOVASCULAR INSUFFICIENCY [None]
  - CYANOSIS [None]
  - DEEP VEIN THROMBOSIS [None]
  - GENERAL PHYSICAL HEALTH DETERIORATION [None]
  - INTESTINAL ISCHAEMIA [None]
  - INTESTINAL OBSTRUCTION [None]
  - JEJUNAL ULCER PERFORATION [None]
  - LYMPH NODE TUBERCULOSIS [None]
  - PERITONEAL TUBERCULOSIS [None]
  - PERITONITIS [None]
  - POISONING [None]
  - POST PROCEDURAL COMPLICATION [None]
  - PULMONARY EMBOLISM [None]
  - PULMONARY TUBERCULOSIS [None]
  - RENAL FAILURE ACUTE [None]
  - RENAL TUBERCULOSIS [None]
  - TUBERCULOSIS GASTROINTESTINAL [None]
  - TUBERCULOSIS LIVER [None]
